FAERS Safety Report 23443781 (Version 2)
Quarter: 2024Q1

REPORT INFORMATION
  Report Type: Report from Study
  Country: US (occurrence: US)
  Receive Date: 20240125
  Receipt Date: 20240311
  Transmission Date: 20240410
  Serious: Yes (Hospitalization)
  Sender: FDA-Public Use
  Company Number: US-TEVA-VS-3134800

PATIENT
  Age: 23 Year
  Sex: Male

DRUGS (1)
  1. CLOZAPINE [Suspect]
     Active Substance: CLOZAPINE
     Indication: Schizophrenia
     Route: 065

REACTIONS (4)
  - Hyperglycaemia [Unknown]
  - Diabetic ketoacidosis [Recovered/Resolved]
  - Mental status changes [Unknown]
  - Type 1 diabetes mellitus [Unknown]
